FAERS Safety Report 5064082-9 (Version None)
Quarter: 2006Q3

REPORT INFORMATION
  Report Type: 
  Country: None (occurrence: None)
  Receive Date: 20060706
  Receipt Date: 20060313
  Transmission Date: 20061208
  Serious: No
  Sender: FDA-Public Use
  Company Number: 200611430BWH

PATIENT
  Age: 73 Year
  Sex: Male

DRUGS (4)
  1. LEVITRA [Suspect]
     Indication: ERECTILE DYSFUNCTION
     Dosage: 10 MG, ORAL, 20 MG, ORAL
     Route: 048
     Dates: start: 20040101
  2. LEVITRA [Suspect]
     Indication: ERECTILE DYSFUNCTION
     Dosage: 10 MG, ORAL, 20 MG, ORAL
     Route: 048
     Dates: start: 20040101
  3. VIAGRA [Suspect]
     Dosage: 50 MG, TOTAL DAILY; 100 MG, TOTAL DAILY
  4. VITAMINS (NOS) [Concomitant]

REACTIONS (2)
  - CYANOPSIA [None]
  - DRUG INEFFECTIVE [None]
